FAERS Safety Report 24574115 (Version 2)
Quarter: 2025Q3

REPORT INFORMATION
  Report Type: Spontaneous
  Country: US (occurrence: US)
  Receive Date: 20241104
  Receipt Date: 20250810
  Transmission Date: 20251021
  Serious: Yes (Hospitalization, Other)
  Sender: ALEXION PHARMACEUTICALS
  Company Number: US-ASTRAZENECA-202410USA022572US

PATIENT
  Age: 70 Year
  Sex: Male
  Weight: 83.46 kg

DRUGS (5)
  1. BRILINTA [Suspect]
     Active Substance: TICAGRELOR
     Dosage: 11 MILLIGRAM, QD
  2. XELJANZ XR [Suspect]
     Active Substance: TOFACITINIB CITRATE
     Indication: Rheumatoid arthritis
     Dosage: 11 MILLIGRAM, QD
  3. XELJANZ XR [Suspect]
     Active Substance: TOFACITINIB CITRATE
     Indication: Psoriatic arthropathy
  4. RINVOQ [Suspect]
     Active Substance: UPADACITINIB
  5. ORENCIA [Suspect]
     Active Substance: ABATACEPT

REACTIONS (10)
  - Haemoglobin decreased [Unknown]
  - Pain [Not Recovered/Not Resolved]
  - Drug ineffective [Not Recovered/Not Resolved]
  - Peripheral swelling [Unknown]
  - Pruritus [Unknown]
  - Crystal deposit intestine [Unknown]
  - Condition aggravated [Unknown]
  - Arthralgia [Unknown]
  - Psoriatic arthropathy [Unknown]
  - Rheumatoid arthritis [Unknown]
